FAERS Safety Report 5672061-3 (Version None)
Quarter: 2008Q2

REPORT INFORMATION
  Report Type: 
  Country: None (occurrence: None)
  Receive Date: 20080219
  Receipt Date: 20071227
  Transmission Date: 20081010
  Serious: No
  Sender: FDA-Public Use
  Company Number: TPA2007A02553

PATIENT
  Age: 55 Year
  Sex: Female
  Weight: 62.5964 kg

DRUGS (5)
  1. ROZEREM [Suspect]
     Indication: SLEEP DISORDER
     Dosage: 8 MG, QHS, PER ORAL ; 8 MG, AS REQUIRED, PER ORAL
     Route: 048
     Dates: start: 20071116, end: 20071117
  2. ROZEREM [Suspect]
     Indication: SLEEP DISORDER
     Dosage: 8 MG, QHS, PER ORAL ; 8 MG, AS REQUIRED, PER ORAL
     Route: 048
     Dates: start: 20071101, end: 20071201
  3. ACYCLOVIR [Concomitant]
  4. PREDNISONE OPTH DROPS (PREDNISONE) (EYE DROPS) [Concomitant]
  5. LORAZEPAM (LORAZEPAM) (TABLETS) [Concomitant]

REACTIONS (1)
  - INITIAL INSOMNIA [None]
